FAERS Safety Report 4885835-3 (Version None)
Quarter: 2006Q1

REPORT INFORMATION
  Report Type: 
  Country: None (occurrence: None)
  Receive Date: 20060117
  Receipt Date: 20060104
  Transmission Date: 20060701
  Serious: Yes (Hospitalization, Other)
  Sender: FDA-Public Use
  Company Number: 2006004129

PATIENT
  Age: 42 Year
  Sex: Female
  Weight: 50 kg

DRUGS (6)
  1. VIAGRA [Suspect]
     Indication: PULMONARY HYPERTENSION
     Dosage: 75 MG (25 MG, 3 IN 1 D), ORAL
     Route: 048
     Dates: start: 20051227
  2. FUROSEMIDE [Concomitant]
  3. SPIRONOLACTONE [Concomitant]
  4. DOBUTAMINE (DOBUTAMINE) [Concomitant]
  5. EPOPROSTENOL (EPOPROSTENOL) [Concomitant]
  6. PRENISONE (PREDNISONE) [Concomitant]

REACTIONS (1)
  - LEUKOPENIA [None]
